FAERS Safety Report 8139325-5 (Version None)
Quarter: 2012Q1

REPORT INFORMATION
  Report Type: 
  Country: None (occurrence: None)
  Receive Date: 20120215
  Receipt Date: 20120204
  Transmission Date: 20120608
  Serious: Yes (Hospitalization)
  Sender: FDA-Public Use
  Company Number: IT-TEVA-322559ISR

PATIENT
  Sex: Male

DRUGS (1)
  1. CARBAMAZEPINE [Suspect]
     Dosage: 200 MILLIGRAM;
     Route: 048
     Dates: start: 20101225, end: 20111224

REACTIONS (1)
  - CONFUSIONAL STATE [None]
